FAERS Safety Report 6194068-2 (Version None)
Quarter: 2009Q2

REPORT INFORMATION
  Report Type: 
  Country: None (occurrence: None)
  Receive Date: 20090518
  Receipt Date: 20090512
  Transmission Date: 20091009
  Serious: Yes (Death)
  Sender: FDA-Public Use
  Company Number: US-WYE-H08956509

PATIENT
  Sex: Male

DRUGS (9)
  1. TORISEL [Suspect]
     Indication: RENAL CELL CARCINOMA
     Route: 042
     Dates: start: 20081002, end: 20090423
  2. COREG [Concomitant]
  3. NEXIUM [Concomitant]
     Dosage: 40MG ONE TIME AT UNKNOWN FREQUENCY
  4. CARDIZEM CD [Concomitant]
     Dosage: 120MG ONE TIME AT UNKNOWN FREQUENCY
  5. ATIVAN [Concomitant]
     Dosage: 1MG ONE OR TWO TIMES AT UNKNOWN FREQUENCY
  6. DILAUDID [Concomitant]
     Dosage: 2MG WHEN NEEDED
  7. ZOFRAN [Concomitant]
     Dosage: 8MG WHEN NEEDED
  8. CLONIDINE [Concomitant]
     Dosage: 0.1MG TWO TO THREE TIMES PER DAY
  9. NORVASC [Concomitant]
     Dosage: 5MG ONE TIME AT UNKNOWN FREQUENCY

REACTIONS (3)
  - DISEASE PROGRESSION [None]
  - MALIGNANT NEOPLASM PROGRESSION [None]
  - RENAL CELL CARCINOMA [None]
